FAERS Safety Report 24147354 (Version 1)
Quarter: 2024Q3

REPORT INFORMATION
  Report Type: Spontaneous
  Country: US (occurrence: None)
  Receive Date: 20240729
  Receipt Date: 20240729
  Transmission Date: 20241017
  Serious: No
  Sender: Public
  Company Number: None

PATIENT
  Age: 80 Year
  Sex: Female

DRUGS (1)
  1. FORTEO [Suspect]
     Active Substance: TERIPARATIDE
     Indication: Senile osteoporosis
     Dosage: INJECT 20MCG SUBCUTANEOUSLY DAILY AS DIRECTED
     Route: 058
     Dates: start: 202308

REACTIONS (2)
  - Hernia repair [None]
  - Therapy interrupted [None]
